FAERS Safety Report 23482467 (Version 1)
Quarter: 2024Q1

REPORT INFORMATION
  Report Type: Spontaneous
  Country: CN (occurrence: CN)
  Receive Date: 20240205
  Receipt Date: 20240205
  Transmission Date: 20240409
  Serious: Yes (Hospitalization)
  Sender: FDA-Public Use
  Company Number: CN-AMGEN-CHNSP2024021552

PATIENT
  Age: 65 Year
  Sex: Female

DRUGS (4)
  1. REPATHA [Suspect]
     Active Substance: EVOLOCUMAB
     Indication: Arteriosclerosis
     Dosage: 140 MILLIGRAM (FREQUENCY-01), (DURATION OF REGIMEN-14)
     Route: 058
     Dates: start: 20240112, end: 20240112
  2. METOPROLOL SUCCINATE [Concomitant]
     Active Substance: METOPROLOL SUCCINATE
     Indication: Arteriosclerosis
     Dosage: 1 TABLET (FREQUENCY -01), (DURATION OF REGIMEN 01)
     Route: 048
     Dates: start: 20240112, end: 20240131
  3. CLOPIDOGREL BISULFATE [Concomitant]
     Active Substance: CLOPIDOGREL BISULFATE
     Indication: Arteriosclerosis
     Dosage: UNK
     Route: 048
     Dates: start: 20240112, end: 20240131
  4. ASPIRIN [Concomitant]
     Active Substance: ASPIRIN
     Indication: Arteriosclerosis
     Dosage: 1 TABLET (FREQUENCY -01), (DURATION OF REGIMEN 01) FORMULATION - ENTERIC COATED TABLET)
     Route: 048
     Dates: start: 20240112, end: 20240131

REACTIONS (1)
  - Drug eruption [Recovering/Resolving]

NARRATIVE: CASE EVENT DATE: 20240112
